FAERS Safety Report 7727227-5 (Version None)
Quarter: 2011Q3

REPORT INFORMATION
  Report Type: 
  Country: None (occurrence: None)
  Receive Date: 20110902
  Receipt Date: 20110818
  Transmission Date: 20111222
  Serious: Yes (Other)
  Sender: FDA-Public Use
  Company Number: CL-BAYER-2011-078874

PATIENT
  Age: 76 Year
  Sex: Male

DRUGS (2)
  1. ASPIRIN [Suspect]
     Indication: PAIN
     Dosage: 500 MG, QD
     Route: 048
     Dates: start: 20090101, end: 20110601
  2. ASPIRIN [Suspect]
     Indication: HEADACHE

REACTIONS (1)
  - HAEMORRHAGE SUBCUTANEOUS [None]
